FAERS Safety Report 18076868 (Version 1)
Quarter: 2020Q3

REPORT INFORMATION
  Report Type: Spontaneous
  Country: US (occurrence: US)
  Receive Date: 20200727
  Receipt Date: 20200727
  Transmission Date: 20201103
  Serious: Yes (Hospitalization)
  Sender: FDA-Public Use
  Company Number: US-LUNDBECK-DKLU3018979

PATIENT
  Age: 74 Year
  Sex: Female

DRUGS (1)
  1. NORTHERA [Suspect]
     Active Substance: DROXIDOPA
     Indication: ORTHOSTATIC HYPOTENSION
     Route: 048
     Dates: end: 202006

REACTIONS (7)
  - Dehydration [Unknown]
  - Drug ineffective [Unknown]
  - Syncope [Unknown]
  - Hypotension [Unknown]
  - Memory impairment [Unknown]
  - Hyperhidrosis [Unknown]
  - Balance disorder [Unknown]
